FAERS Safety Report 7794180-8 (Version None)
Quarter: 2011Q4

REPORT INFORMATION
  Report Type: 
  Country: None (occurrence: None)
  Receive Date: 20111004
  Receipt Date: 20110824
  Transmission Date: 20120403
  Serious: Yes (Hospitalization)
  Sender: FDA-Public Use
  Company Number: AU-AMGEN-AUSCT2011038691

PATIENT
  Age: 62 Year
  Sex: Female

DRUGS (17)
  1. MAXOLON [Concomitant]
     Indication: NAUSEA
     Dosage: 10 MG, UNK
     Route: 048
     Dates: start: 20110506
  2. COLOXYL WITH SENNA [Concomitant]
     Indication: CONSTIPATION
     Dosage: UNK UNK, PRN
     Route: 048
     Dates: start: 20110508
  3. CALTRATE D [Concomitant]
     Indication: SPINAL CORD COMPRESSION
     Dosage: 1000 MG, QD
     Route: 048
     Dates: start: 20100201
  4. NEULASTA [Concomitant]
     Dosage: UNK UNK, QWK
     Route: 058
     Dates: start: 20110506
  5. CURAM [Concomitant]
     Indication: INFECTION
     Dosage: UNK UNK, BID
     Route: 048
     Dates: start: 20110518, end: 20110521
  6. LIPITOR [Concomitant]
     Indication: HYPOCHOLESTEROLAEMIA
     Dosage: 20 MG, QD
     Route: 048
     Dates: start: 20100201
  7. IBILEX [Concomitant]
     Indication: INFECTION
     Dosage: 500 MG, QID
     Route: 048
     Dates: start: 20110604, end: 20110609
  8. BLINDED DENOSUMAB [Suspect]
     Indication: BREAST CANCER
     Dosage: UNK
     Dates: start: 20110504
  9. BLINDED PLACEBO [Suspect]
     Indication: BREAST CANCER
     Dosage: UNK
     Dates: start: 20110504
  10. OSTELIN [Concomitant]
     Indication: SUPPLEMENTATION THERAPY
     Dosage: UNK UNK, PRN
     Route: 048
     Dates: start: 20110504
  11. PACLITAXEL [Concomitant]
     Dosage: 310 ML, 2 TIMES/WK
     Route: 042
     Dates: start: 20110706
  12. FISH OIL [Concomitant]
     Indication: SUPPLEMENTATION THERAPY
     Dosage: 4000 MG, QD
     Route: 048
     Dates: start: 20080101
  13. ACETAMINOPHEN AND CODEINE PHOSPHATE [Concomitant]
     Indication: ARTHRALGIA
     Dosage: UNK UNK, PRN
     Route: 048
     Dates: start: 20110519
  14. IBUPROFEN [Concomitant]
     Indication: ARTHRALGIA
     Dosage: UNK UNK, PRN
     Route: 048
     Dates: start: 20110519
  15. IBUPROFEN [Concomitant]
     Indication: BACK PAIN
  16. NULAX [Concomitant]
     Indication: CONSTIPATION
     Dosage: 10 G, PRN
     Route: 048
     Dates: start: 20110607, end: 20110607
  17. ATIVAN [Concomitant]
     Indication: NAUSEA
     Dosage: UNK UNK, PRN
     Route: 048
     Dates: start: 20110517

REACTIONS (1)
  - PNEUMONITIS [None]
